FAERS Safety Report 15275083 (Version 1)
Quarter: 2018Q3

REPORT INFORMATION
  Report Type: Spontaneous
  Country: US (occurrence: US)
  Receive Date: 20180727
  Receipt Date: 20180727
  Transmission Date: 20181010
  Serious: No
  Sender: FDA-Public Use
  Company Number: None

PATIENT
  Age: 58 Year
  Sex: Female

DRUGS (2)
  1. VALSARTAN?HCTZ 80?12.5 MG [Concomitant]
     Dates: start: 20180604, end: 20180720
  2. VALSARTAN AND HYDROCHLOROTHIAZIDE [Suspect]
     Active Substance: HYDROCHLOROTHIAZIDE\VALSARTAN
     Indication: HYPERTENSION
     Route: 048
     Dates: start: 20180604, end: 20180720

REACTIONS (3)
  - Headache [None]
  - Recalled product [None]
  - Abdominal pain upper [None]

NARRATIVE: CASE EVENT DATE: 20180701
